FAERS Safety Report 8531463-8 (Version None)
Quarter: 2012Q3

REPORT INFORMATION
  Report Type: 
  Country: None (occurrence: None)
  Receive Date: 20120723
  Receipt Date: 20120713
  Transmission Date: 20120928
  Serious: Yes (Hospitalization)
  Sender: FDA-Public Use
  Company Number: CH-TEVA-339949ISR

PATIENT
  Age: 89 Year
  Sex: Female

DRUGS (7)
  1. IBUPROFEN TABLETS [Suspect]
     Indication: PAIN
     Dosage: 1200 MILLIGRAM;
     Route: 048
  2. ESCITALOPRAM [Suspect]
     Indication: DEPRESSION
     Dosage: 10 MILLIGRAM;
     Route: 048
  3. ORLISTAT [Concomitant]
     Indication: COGNITIVE DISORDER
     Dosage: 1 DOSAGE FORMS;
     Route: 048
     Dates: start: 20120224
  4. IMOVANE [Concomitant]
     Indication: SLEEP DISORDER
     Dosage: 7.5 MILLIGRAM;
     Route: 048
  5. ACETAMINOPHEN [Concomitant]
     Indication: PAIN
     Route: 048
  6. CALCIMAGON D3 [Concomitant]
     Indication: OSTEOPOROSIS
     Route: 048
  7. OMEPRAZOLE [Suspect]
     Dosage: 40 MILLIGRAM;
     Route: 048
     Dates: end: 20120220

REACTIONS (1)
  - HYPONATRAEMIA [None]
